FAERS Safety Report 20803649 (Version 2)
Quarter: 2022Q2

REPORT INFORMATION
  Report Type: Spontaneous
  Country: US (occurrence: US)
  Receive Date: 20220509
  Receipt Date: 20220524
  Transmission Date: 20220720
  Serious: Yes (Other)
  Sender: FDA-Public Use
  Company Number: US-BAYER-2022A062883

PATIENT
  Age: 64 Year
  Sex: Female

DRUGS (2)
  1. STIVARGA [Suspect]
     Active Substance: REGORAFENIB
     Indication: Product used for unknown indication
     Dosage: UNK
  2. LONSURF [Suspect]
     Active Substance: TIPIRACIL HYDROCHLORIDE\TRIFLURIDINE
     Indication: Rectal cancer
     Dosage: 60 MG, BID
     Route: 048
     Dates: start: 202111

REACTIONS (16)
  - Haematochezia [Unknown]
  - Large intestinal ulcer [None]
  - Dental restoration failure [Unknown]
  - Dental caries [Unknown]
  - Cough [Unknown]
  - Dental caries [None]
  - Burning sensation [Unknown]
  - Palmar-plantar erythrodysaesthesia syndrome [Unknown]
  - Glossodynia [Unknown]
  - Nausea [Unknown]
  - Fatigue [Unknown]
  - Diarrhoea [Unknown]
  - Vomiting [Unknown]
  - Illness [Unknown]
  - Pain [Unknown]
  - Weight decreased [Unknown]

NARRATIVE: CASE EVENT DATE: 20220222
